FAERS Safety Report 4699917-2 (Version None)
Quarter: 2005Q2

REPORT INFORMATION
  Report Type: 
  Country: None (occurrence: None)
  Receive Date: 20050624
  Receipt Date: 20050322
  Transmission Date: 20051028
  Serious: Yes (Hospitalization)
  Sender: FDA-Public Use
  Company Number: US-MERCK-0503USA04203

PATIENT
  Age: 54 Year
  Sex: Male
  Weight: 127 kg

DRUGS (7)
  1. VIOXX [Suspect]
     Indication: ARTHRITIS
     Route: 048
     Dates: start: 20010401, end: 20031222
  2. ALLOPURINOL [Concomitant]
     Indication: GOUT
     Route: 065
  3. COLCHICINE [Concomitant]
     Route: 065
  4. COZAAR [Concomitant]
     Indication: HYPERTENSION
     Route: 065
     Dates: end: 20040801
  5. ROXICET [Concomitant]
     Indication: PAIN
     Route: 065
  6. CIPROFLOXACIN [Concomitant]
     Route: 065
  7. UROCIT-K [Concomitant]
     Route: 065

REACTIONS (9)
  - BLOOD CHOLESTEROL INCREASED [None]
  - BLOOD TRIGLYCERIDES INCREASED [None]
  - CHEST PAIN [None]
  - DEPRESSION [None]
  - HAEMATOCHEZIA [None]
  - HYPERTENSION [None]
  - INSOMNIA [None]
  - MYOCARDIAL INFARCTION [None]
  - PAIN [None]
